FAERS Safety Report 14634562 (Version 2)
Quarter: 2018Q4

REPORT INFORMATION
  Report Type: Spontaneous
  Country: FR (occurrence: FR)
  Receive Date: 20180314
  Receipt Date: 20181025
  Transmission Date: 20190204
  Serious: Yes (Hospitalization)
  Sender: FDA-Public Use
  Company Number: FR-MERCK KGAA-2043675

PATIENT
  Age: 78 Year
  Sex: Male

DRUGS (1)
  1. EUTHYROX [Suspect]
     Active Substance: LEVOTHYROXINE SODIUM
     Indication: POST PROCEDURAL HYPOTHYROIDISM
     Dates: start: 201705

REACTIONS (10)
  - Somnolence [None]
  - Cardiac disorder [None]
  - Loss of personal independence in daily activities [None]
  - Fatigue [None]
  - Blood thyroid stimulating hormone decreased [None]
  - Back pain [None]
  - Mobility decreased [None]
  - Poor quality sleep [None]
  - Irritability [None]
  - Malaise [None]

NARRATIVE: CASE EVENT DATE: 20170921
